FAERS Safety Report 9057467 (Version 2)
Quarter: 2014Q3

REPORT INFORMATION
  Report Type: Spontaneous
  Country: US (occurrence: US)
  Receive Date: 20130204
  Receipt Date: 20140807
  Transmission Date: 20150326
  Serious: Yes (Other)
  Sender: FDA-Public Use
  Company Number: US-ALLERGAN-1301356US

PATIENT
  Age: 57 Year
  Sex: Female

DRUGS (1)
  1. RESTASIS [Suspect]
     Active Substance: CYCLOSPORINE
     Indication: DRY EYE
     Dosage: 1 GTT OU, BID
     Route: 047
     Dates: start: 20130101, end: 20130201

REACTIONS (3)
  - Hypoaesthesia oral [Unknown]
  - Pharyngeal oedema [Recovering/Resolving]
  - Blepharospasm [Unknown]

NARRATIVE: CASE EVENT DATE: 201301
